FAERS Safety Report 6999571-0 (Version None)
Quarter: 2010Q3

REPORT INFORMATION
  Report Type: 
  Country: None (occurrence: None)
  Receive Date: 20100920
  Receipt Date: 20070705
  Transmission Date: 20110219
  Serious: Yes (Other)
  Sender: FDA-Public Use
  Company Number: US-ASTRAZENECA-2006UW25656

PATIENT
  Age: 56 Year
  Sex: Female
  Weight: 71.7 kg

DRUGS (13)
  1. SEROQUEL [Suspect]
     Indication: DEPRESSION
     Dosage: 25-300 MG
     Route: 048
     Dates: start: 20040210
  2. SEROQUEL [Suspect]
     Indication: SCHIZOPHRENIA
     Dosage: 25-300 MG
     Route: 048
     Dates: start: 20040210
  3. SEROQUEL [Suspect]
     Indication: BIPOLAR DISORDER
     Dosage: 25-300 MG
     Route: 048
     Dates: start: 20040210
  4. SEROQUEL [Suspect]
     Indication: HALLUCINATION, AUDITORY
     Dosage: 25-300 MG
     Route: 048
     Dates: start: 20040210
  5. SEROQUEL [Suspect]
     Indication: SLEEP DISORDER
     Dosage: 25-300 MG
     Route: 048
     Dates: start: 20040210
  6. SEROQUEL [Suspect]
     Route: 048
     Dates: start: 20041201, end: 20060228
  7. SEROQUEL [Suspect]
     Route: 048
     Dates: start: 20041201, end: 20060228
  8. SEROQUEL [Suspect]
     Route: 048
     Dates: start: 20041201, end: 20060228
  9. SEROQUEL [Suspect]
     Route: 048
     Dates: start: 20041201, end: 20060228
  10. SEROQUEL [Suspect]
     Route: 048
     Dates: start: 20041201, end: 20060228
  11. ZOLOFT [Concomitant]
     Indication: DEPRESSION
     Route: 048
     Dates: start: 20040122
  12. ZESTRIL [Concomitant]
     Route: 048
     Dates: start: 20030503
  13. ABILIFY [Concomitant]
     Route: 048
     Dates: start: 20041005

REACTIONS (2)
  - DIABETES MELLITUS [None]
  - KETOACIDOSIS [None]
